FAERS Safety Report 24760717 (Version 2)
Quarter: 2024Q4

REPORT INFORMATION
  Report Type: Spontaneous
  Country: SG (occurrence: SG)
  Receive Date: 20241220
  Receipt Date: 20241224
  Transmission Date: 20250114
  Serious: Yes (Death)
  Sender: PFIZER
  Company Number: SG-PFIZER INC-202400329775

PATIENT
  Sex: Male
  Weight: 0.66 kg

DRUGS (12)
  1. GENTAMICIN SULFATE [Suspect]
     Active Substance: GENTAMICIN SULFATE
     Indication: Klebsiella infection
     Dosage: UNK
     Route: 042
  2. GENTAMICIN SULFATE [Suspect]
     Active Substance: GENTAMICIN SULFATE
     Indication: Liver abscess
  3. GENTAMICIN SULFATE [Suspect]
     Active Substance: GENTAMICIN SULFATE
     Indication: Brain abscess
  4. AMIKACIN SULFATE [Suspect]
     Active Substance: AMIKACIN SULFATE
     Indication: Klebsiella infection
     Dosage: UNK
     Route: 042
  5. AMIKACIN SULFATE [Suspect]
     Active Substance: AMIKACIN SULFATE
     Indication: Liver abscess
  6. AMIKACIN SULFATE [Suspect]
     Active Substance: AMIKACIN SULFATE
     Indication: Brain abscess
  7. AMPICILLIN [Suspect]
     Active Substance: AMPICILLIN
     Indication: Klebsiella infection
     Dosage: UNK
     Route: 042
  8. AMPICILLIN [Suspect]
     Active Substance: AMPICILLIN
     Indication: Liver abscess
  9. AMPICILLIN [Suspect]
     Active Substance: AMPICILLIN
     Indication: Brain abscess
  10. CEFOTAXIME [Suspect]
     Active Substance: CEFOTAXIME SODIUM
     Indication: Klebsiella infection
     Dosage: UNK
     Route: 042
  11. CEFOTAXIME [Suspect]
     Active Substance: CEFOTAXIME SODIUM
     Indication: Liver abscess
  12. CEFOTAXIME [Suspect]
     Active Substance: CEFOTAXIME SODIUM
     Indication: Brain abscess

REACTIONS (2)
  - Drug ineffective [Fatal]
  - Neonatal multi-organ failure [Fatal]
